FAERS Safety Report 24968976 (Version 1)
Quarter: 2025Q1

REPORT INFORMATION
  Report Type: Report from Study
  Country: US (occurrence: US)
  Receive Date: 20250214
  Receipt Date: 20250214
  Transmission Date: 20250408
  Serious: No
  Sender: AMNEAL
  Company Number: US-AMNEAL PHARMACEUTICALS-2024-AMRX-03892

PATIENT
  Age: 81 Year
  Sex: Male

DRUGS (8)
  1. CARBIDOPA\LEVODOPA [Suspect]
     Active Substance: CARBIDOPA\LEVODOPA
     Indication: Product used for unknown indication
     Dosage: (23.75-95 MG) 3 CAPSULES, 3 /DAY
     Route: 048
  2. CARBIDOPA\LEVODOPA [Suspect]
     Active Substance: CARBIDOPA\LEVODOPA
     Dosage: (23.75-95 MG) 1 CAPSULES, 3 /DAY  FOR 1 WEEK
     Route: 048
  3. CARBIDOPA\LEVODOPA [Suspect]
     Active Substance: CARBIDOPA\LEVODOPA
     Dosage: (23.75-95 MG) 2 CAPS, 1 CAPS, 1 CAP FOR 1 WEEK
     Route: 048
  4. CARBIDOPA\LEVODOPA [Suspect]
     Active Substance: CARBIDOPA\LEVODOPA
     Dosage: (23.75-95 MG) 2 CAPS, 2 CAPS, 1 CAP FOR 1 WEEK
     Route: 048
  5. CARBIDOPA\LEVODOPA [Suspect]
     Active Substance: CARBIDOPA\LEVODOPA
     Dosage: (23.75-95 MG) 2 CAPSULES, 3 /DAY FOR 1 WEEK
     Route: 048
  6. CARBIDOPA\LEVODOPA [Suspect]
     Active Substance: CARBIDOPA\LEVODOPA
     Dosage: (23.75-95 MG) 3 CAPSULES, 3 /DAY
     Route: 048
  7. CARBIDOPA\LEVODOPA [Suspect]
     Active Substance: CARBIDOPA\LEVODOPA
     Dosage: (23.75-95 MG) 4 CAPSULES, 3 /DAY
     Route: 048
     Dates: start: 20241219
  8. CARBIDOPA\LEVODOPA [Suspect]
     Active Substance: CARBIDOPA\LEVODOPA
     Dosage: (23.75-95 MG) 5 CAPSULES, 3 /DAY
     Route: 048

REACTIONS (6)
  - Brain fog [Unknown]
  - Feeling abnormal [Unknown]
  - Tremor [Not Recovered/Not Resolved]
  - Dizziness [Unknown]
  - Drug ineffective [Unknown]
  - Product use issue [Unknown]

NARRATIVE: CASE EVENT DATE: 20241219
